FAERS Safety Report 12777452 (Version 1)
Quarter: 2016Q3

REPORT INFORMATION
  Report Type: Spontaneous
  Country: US (occurrence: US)
  Receive Date: 20160924
  Receipt Date: 20160924
  Transmission Date: 20161109
  Serious: Yes (Other)
  Sender: FDA-Public Use
  Company Number: US-TEVA-627102USA

PATIENT
  Age: 12 Year

DRUGS (1)
  1. CARBAMAZEPINE. [Suspect]
     Active Substance: CARBAMAZEPINE
     Indication: SEIZURE
     Dosage: THE CHILD TAKES 7 TABLETS BY MOUTH DAILY
     Route: 048

REACTIONS (3)
  - Incorrect route of drug administration [Unknown]
  - Wrong technique in product usage process [Unknown]
  - Seizure [Unknown]

NARRATIVE: CASE EVENT DATE: 201601
